FAERS Safety Report 12714951 (Version 1)
Quarter: 2016Q3

REPORT INFORMATION
  Report Type: Spontaneous
  Country: US (occurrence: US)
  Receive Date: 20160905
  Receipt Date: 20160905
  Transmission Date: 20161109
  Serious: No
  Sender: FDA-Public Use
  Company Number: US-JNJFOC-20160901744

PATIENT
  Age: 70 Year
  Sex: Female
  Weight: 78.02 kg

DRUGS (4)
  1. ZYRTEC [Suspect]
     Active Substance: CETIRIZINE HYDROCHLORIDE
     Route: 048
  2. ZYRTEC [Suspect]
     Active Substance: CETIRIZINE HYDROCHLORIDE
     Indication: URTICARIA
     Route: 048
  3. PREDNISONE. [Concomitant]
     Active Substance: PREDNISONE
     Indication: INFLAMMATION
     Route: 065
  4. ZYRTEC-D [Concomitant]
     Active Substance: CETIRIZINE HYDROCHLORIDE\PSEUDOEPHEDRINE HYDROCHLORIDE
     Indication: SINUS CONGESTION
     Route: 065

REACTIONS (3)
  - Incorrect dose administered [Unknown]
  - Product use issue [Unknown]
  - Off label use [Unknown]
